FAERS Safety Report 8247741-6 (Version None)
Quarter: 2012Q1

REPORT INFORMATION
  Report Type: 
  Country: None (occurrence: None)
  Receive Date: 20120330
  Receipt Date: 20120328
  Transmission Date: 20120608
  Serious: Yes (Hospitalization)
  Sender: FDA-Public Use
  Company Number: US-GLAXOSMITHKLINE-A0971592A

PATIENT
  Age: 72 Year
  Sex: Female
  Weight: 52.7 kg

DRUGS (5)
  1. VOTRIENT [Suspect]
     Indication: NON-SMALL CELL LUNG CANCER
     Dosage: 400MG PER DAY
     Route: 048
     Dates: start: 20110330, end: 20110620
  2. SYNTHROID [Concomitant]
  3. REGLAN [Concomitant]
  4. LORAZEPAM [Concomitant]
  5. HYDROCHLOROTHIAZIDE [Concomitant]

REACTIONS (2)
  - PYREXIA [None]
  - DEHYDRATION [None]
